FAERS Safety Report 7968358-4 (Version None)
Quarter: 2011Q4

REPORT INFORMATION
  Report Type: 
  Country: None (occurrence: None)
  Receive Date: 20111209
  Receipt Date: 20111027
  Transmission Date: 20120403
  Serious: Yes (Hospitalization)
  Sender: FDA-Public Use
  Company Number: US-BAYER-2011-056858

PATIENT
  Age: 25 Year
  Sex: Female

DRUGS (21)
  1. YASMIN [Suspect]
     Dosage: UNK
     Dates: start: 20090101, end: 20090501
  2. FIORICET [Concomitant]
  3. LEVOTHROID [Concomitant]
     Dosage: 100 ?G, UNK
     Route: 048
  4. ACETAMINOPHEN W/ CODEINE [Concomitant]
     Indication: PAIN
     Dosage: UNK
     Dates: start: 20090423
  5. DROSPIRENONE AND ETHINYL ESTRADIOL [Suspect]
     Indication: ORAL CONTRACEPTION
     Dosage: UNK UNK, QD
     Dates: start: 20090101, end: 20090501
  6. LEVOTHROID [Concomitant]
     Dosage: 50 ?G, QD
     Route: 048
  7. IBUPROFEN [Concomitant]
  8. LEVOTHROID [Concomitant]
     Indication: HYPOTHYROIDISM
     Dosage: 125 ?G, UNK
     Route: 048
     Dates: start: 20050921
  9. LEVOTHROID [Concomitant]
     Dosage: 75 ?G, QD
     Route: 048
  10. CITALOPRAM [Concomitant]
     Dosage: 20 MG, UNK
     Route: 048
  11. ROBAXIN [Concomitant]
     Indication: MUSCLE RELAXANT THERAPY
  12. METHYLPREDNISOLONE [Concomitant]
     Dosage: 4 MG, UNK
     Route: 048
     Dates: start: 20090429
  13. NORCO [Concomitant]
  14. OMEPRAZOLE [Concomitant]
     Dosage: 20 MG, UNK
     Route: 048
  15. CYCLOBENZAPRINE [Concomitant]
     Indication: MUSCLE SPASMS
     Dosage: 10 MG, UNK
     Dates: start: 20090423
  16. ACETAMINOPHEN AND HYDROCODONE BITARTRATE [Concomitant]
     Dosage: UNK
     Route: 048
     Dates: start: 20090429
  17. LEVOTHYROXINE SODIUM [Concomitant]
  18. PRILOSEC [Concomitant]
  19. IMITREX [Concomitant]
  20. CEPHALEXIN [Concomitant]
     Dosage: 500 MG, UNK
     Route: 048
     Dates: start: 20090429
  21. XANAX [Concomitant]

REACTIONS (5)
  - HEADACHE [None]
  - DEEP VEIN THROMBOSIS [None]
  - PULMONARY EMBOLISM [None]
  - CEREBRAL THROMBOSIS [None]
  - PAIN [None]
